FAERS Safety Report 9264150 (Version 1)
Quarter: 2013Q2

REPORT INFORMATION
  Report Type: Spontaneous
  Country: US (occurrence: US)
  Receive Date: 20130430
  Receipt Date: 20130430
  Transmission Date: 20140414
  Serious: No
  Sender: FDA-Public Use
  Company Number: US-ASTRAZENECA-2013SE26937

PATIENT
  Sex: Female

DRUGS (2)
  1. SEROQUEL [Suspect]
     Indication: BIPOLAR DISORDER
     Route: 048
     Dates: start: 2008
  2. SEROQUEL [Suspect]
     Indication: BIPOLAR DISORDER
     Dosage: 100 MG GENERIC
     Route: 048
     Dates: start: 201208

REACTIONS (7)
  - Generalised erythema [Unknown]
  - Burning sensation [Unknown]
  - Adverse event [Unknown]
  - Pyrexia [Unknown]
  - Weight increased [Unknown]
  - Somnolence [Unknown]
  - Drug ineffective [Unknown]
